FAERS Safety Report 11593969 (Version 1)
Quarter: 2015Q4

REPORT INFORMATION
  Report Type: Spontaneous
  Country: US (occurrence: US)
  Receive Date: 20151005
  Receipt Date: 20151005
  Transmission Date: 20160304
  Serious: No
  Sender: FDA-Public Use
  Company Number: US-APOTEX-2015AP009078

PATIENT
  Age: 86 Year
  Sex: Female

DRUGS (2)
  1. HALOPERIDOL. [Suspect]
     Active Substance: HALOPERIDOL
     Indication: VASCULAR DEMENTIA
     Route: 065
  2. DIAZEPAM. [Suspect]
     Active Substance: DIAZEPAM
     Indication: VASCULAR DEMENTIA
     Route: 065

REACTIONS (3)
  - Speech disorder [Recovered/Resolved]
  - Weight decreased [Unknown]
  - Dysphagia [Unknown]
